FAERS Safety Report 8265530-3 (Version None)
Quarter: 2012Q2

REPORT INFORMATION
  Report Type: 
  Country: None (occurrence: None)
  Receive Date: 20120406
  Receipt Date: 20120403
  Transmission Date: 20120825
  Serious: Yes (Death, Other)
  Sender: FDA-Public Use
  Company Number: US-PFIZER INC-2012084456

PATIENT

DRUGS (1)
  1. ZITHROMAX [Suspect]
     Dosage: UNK
     Route: 042

REACTIONS (5)
  - CARDIAC DISORDER [None]
  - RESPIRATORY DISORDER [None]
  - CARDIAC ARREST [None]
  - HYPERTENSION [None]
  - BRADYCARDIA [None]
